FAERS Safety Report 4944976-2 (Version None)
Quarter: 2006Q1

REPORT INFORMATION
  Report Type: 
  Country: None (occurrence: None)
  Receive Date: 20060123
  Receipt Date: 20051018
  Transmission Date: 20060701
  Serious: Yes (Other)
  Sender: FDA-Public Use
  Company Number: PHEH2005US07681

PATIENT
  Age: 65 Year
  Sex: Female
  Weight: 63.5 kg

DRUGS (8)
  1. SANDOSTATIN LAR [Suspect]
     Indication: CARCINOID SYNDROME
     Dosage: 20 MG; 30 MG; 40 MG, QMO, INJECTION NOS
     Dates: end: 20040101
  2. SANDOSTATIN LAR [Suspect]
     Indication: CARCINOID SYNDROME
     Dosage: 20 MG; 30 MG; 40 MG, QMO, INJECTION NOS
     Dates: start: 20020101
  3. SANDOSTATIN LAR [Suspect]
     Indication: CARCINOID SYNDROME
     Dosage: 20 MG; 30 MG; 40 MG, QMO, INJECTION NOS
     Dates: start: 20040101
  4. INTRON(INTERFERON ALFA) [Suspect]
     Dosage: 3 MILLION UNITS/3 X WK
     Dates: start: 20050101, end: 20050702
  5. SYNTHROID [Concomitant]
  6. FOLIC ACID [Concomitant]
  7. LIPITOR [Concomitant]
  8. VITAPLEX (VITAMINS NOS) [Concomitant]

REACTIONS (12)
  - APPLICATION SITE PAIN [None]
  - BLOOD POTASSIUM DECREASED [None]
  - DIARRHOEA [None]
  - EATING DISORDER [None]
  - FATIGUE [None]
  - FLUSHING [None]
  - HAEMOGLOBIN DECREASED [None]
  - OCCULT BLOOD POSITIVE [None]
  - PLATELET COUNT DECREASED [None]
  - RED BLOOD CELL COUNT DECREASED [None]
  - WEIGHT DECREASED [None]
  - WHITE BLOOD CELL COUNT DECREASED [None]
